FAERS Safety Report 5577787-8 (Version None)
Quarter: 2007Q4

REPORT INFORMATION
  Report Type: 
  Country: None (occurrence: None)
  Receive Date: 20071227
  Receipt Date: 20071218
  Transmission Date: 20080405
  Serious: Yes (Death, Other)
  Sender: FDA-Public Use
  Company Number: 163-21880-07111209

PATIENT
  Age: 73 Year
  Sex: Male

DRUGS (1)
  1. REVLIMID [Suspect]
     Indication: AMYLOIDOSIS
     Dosage: 25 MG, QD, ORAL
     Route: 048
     Dates: start: 20070702, end: 20070801

REACTIONS (4)
  - AMYLOIDOSIS [None]
  - CACHEXIA [None]
  - DISEASE PROGRESSION [None]
  - RESTRICTIVE CARDIOMYOPATHY [None]
